FAERS Safety Report 6563226-7 (Version None)
Quarter: 2010Q1

REPORT INFORMATION
  Report Type: 
  Country: None (occurrence: None)
  Receive Date: 20100130
  Receipt Date: 20091207
  Transmission Date: 20100710
  Serious: No
  Sender: FDA-Public Use
  Company Number: US-ABBOTT-09P-163-0613166-00

PATIENT
  Sex: Male
  Weight: 68.1 kg

DRUGS (6)
  1. HUMIRA [Suspect]
     Indication: ANKYLOSING SPONDYLITIS
     Route: 058
     Dates: start: 20090301, end: 20091021
  2. HUMIRA [Suspect]
     Route: 058
     Dates: start: 20091207
  3. HYDROCODONE [Concomitant]
     Indication: DRUG USE FOR UNKNOWN INDICATION
  4. LISINOPRIL [Concomitant]
     Indication: HYPERTENSION
  5. ANTIHISTAMINES [Concomitant]
     Indication: ALLERGY TO PLANTS
  6. PROAIR HFA [Concomitant]
     Indication: HYPERSENSITIVITY

REACTIONS (3)
  - COUGH [None]
  - LOCALISED INFECTION [None]
  - PRODUCTIVE COUGH [None]
